FAERS Safety Report 18653176 (Version 1)
Quarter: 2020Q4

REPORT INFORMATION
  Report Type: Spontaneous
  Country: US (occurrence: US)
  Receive Date: 20201223
  Receipt Date: 20201223
  Transmission Date: 20210114
  Serious: No
  Sender: FDA-Public Use
  Company Number: US-DRREDDYS-USA/USA/20/0130051

PATIENT
  Age: 56 Year
  Sex: Female
  Weight: 48.6 kg

DRUGS (1)
  1. HABITROL [Suspect]
     Active Substance: NICOTINE
     Indication: EX-TOBACCO USER
     Dosage: ONE AND HALF DAYS
     Route: 062
     Dates: start: 20201212, end: 20201213

REACTIONS (1)
  - Agitation [Unknown]
